FAERS Safety Report 20601177 (Version 1)
Quarter: 2022Q1

REPORT INFORMATION
  Report Type: Spontaneous
  Country: US (occurrence: US)
  Receive Date: 20220316
  Receipt Date: 20220316
  Transmission Date: 20220423
  Serious: Yes (Other)
  Sender: FDA-Public Use
  Company Number: US-NOVARTISPH-NVSC2022US059917

PATIENT
  Age: 52 Year
  Sex: Female

DRUGS (3)
  1. IMIQUIMOD [Suspect]
     Active Substance: IMIQUIMOD
     Indication: Melanoma recurrent
     Dosage: UNK, QOD (EVERY OTHER DAY)
     Route: 061
  2. IMIQUIMOD [Suspect]
     Active Substance: IMIQUIMOD
     Dosage: UNK, ONCE EVERY 3 DAYS
     Route: 065
  3. PEMBROLIZUMAB [Suspect]
     Active Substance: PEMBROLIZUMAB
     Indication: Melanoma recurrent
     Dosage: 2 MG/KG, TIW (EVERY 3 WEEKS)
     Route: 065

REACTIONS (6)
  - Haemorrhage [Unknown]
  - Stomatitis [Unknown]
  - Constipation [Unknown]
  - Fatigue [Unknown]
  - Arthralgia [Unknown]
  - Product use in unapproved indication [Unknown]
